FAERS Safety Report 7851429-0 (Version None)
Quarter: 2011Q4

REPORT INFORMATION
  Report Type: 
  Country: None (occurrence: None)
  Receive Date: 20111026
  Receipt Date: 20111020
  Transmission Date: 20120403
  Serious: Yes (Other)
  Sender: FDA-Public Use
  Company Number: BR-ABBOTT-11P-020-0867519-00

PATIENT
  Sex: Female
  Weight: 62 kg

DRUGS (7)
  1. HUMIRA [Suspect]
     Indication: RHEUMATOID ARTHRITIS
     Route: 058
  2. METHOTREXATE [Concomitant]
     Indication: RHEUMATOID ARTHRITIS
     Route: 048
     Dates: start: 20110501
  3. METHOTREXATE [Concomitant]
  4. COMBINED FORMULA: DIACEREIN, CHLOROQUINE, FAMOTIDINE [Concomitant]
     Indication: GASTRIC DISORDER
     Dosage: DAILY:200MG/200MG/20MG
  5. ANALGESIC [Concomitant]
     Indication: PAIN
  6. METHOTREXATE [Concomitant]
  7. HUMIRA [Suspect]

REACTIONS (1)
  - RHEUMATOID NODULE [None]
